FAERS Safety Report 7287887-2 (Version None)
Quarter: 2011Q1

REPORT INFORMATION
  Report Type: 
  Country: None (occurrence: None)
  Receive Date: 20110211
  Receipt Date: 20101208
  Transmission Date: 20110831
  Serious: No
  Sender: FDA-Public Use
  Company Number: A0898591A

PATIENT
  Age: 58 Year
  Sex: Male

DRUGS (2)
  1. NO CONCURRENT MEDICATION [Concomitant]
  2. TREXIMET [Suspect]
     Indication: MIGRAINE
     Dosage: 1TAB PER DAY
     Route: 048
     Dates: start: 20101206

REACTIONS (3)
  - SLEEP DISORDER [None]
  - MIDDLE INSOMNIA [None]
  - DYSPNOEA [None]
